FAERS Safety Report 10493550 (Version 1)
Quarter: 2014Q4

REPORT INFORMATION
  Report Type: Spontaneous
  Country: US (occurrence: US)
  Receive Date: 20141002
  Receipt Date: 20141002
  Transmission Date: 20150528
  Serious: No
  Sender: FDA-Public Use
  Company Number: US-GLAXOSMITHKLINE-A1085518A

PATIENT
  Sex: Female

DRUGS (1)
  1. ADVAIR HFA [Suspect]
     Active Substance: FLUTICASONE PROPIONATE\SALMETEROL XINAFOATE
     Indication: PRODUCT USED FOR UNKNOWN INDICATION
     Route: 055

REACTIONS (8)
  - Drug ineffective [Unknown]
  - Vocal cord disorder [Unknown]
  - Odynophagia [Unknown]
  - Lung disorder [Unknown]
  - Pain [Unknown]
  - Pharyngitis [Unknown]
  - Oral pain [Unknown]
  - Oropharyngeal pain [Unknown]
